FAERS Safety Report 6641413-7 (Version None)
Quarter: 2010Q1

REPORT INFORMATION
  Report Type: 
  Country: None (occurrence: None)
  Receive Date: 20100317
  Receipt Date: 20100317
  Transmission Date: 20100710
  Serious: Yes (Death)
  Sender: FDA-Public Use
  Company Number: None

PATIENT
  Age: 68 Year
  Sex: Male
  Weight: 63.9572 kg

DRUGS (2)
  1. CETUXIMAB [Suspect]
     Indication: LUNG NEOPLASM MALIGNANT
     Dosage: 445 MG, IV WEEKLY
     Route: 042
  2. RAD 001 [Suspect]
     Dosage: 7.5 MG DAILY

REACTIONS (2)
  - MALIGNANT NEOPLASM PROGRESSION [None]
  - RESPIRATORY DISTRESS [None]
